FAERS Safety Report 9374623 (Version 3)
Quarter: 2013Q3

REPORT INFORMATION
  Report Type: Spontaneous
  Country: US (occurrence: US)
  Receive Date: 20130628
  Receipt Date: 20130816
  Transmission Date: 20140515
  Serious: Yes (Life-Threatening, Hospitalization, Disabling)
  Sender: FDA-Public Use
  Company Number: US-JNJFOC-20130612903

PATIENT
  Age: 54 Year
  Sex: Female
  Weight: 66.23 kg

DRUGS (6)
  1. XARELTO [Suspect]
     Indication: DEEP VEIN THROMBOSIS
     Route: 048
  2. XARELTO [Suspect]
     Indication: DEEP VEIN THROMBOSIS
     Dosage: FOR 21 DAYS
     Route: 048
     Dates: start: 20130129
  3. SINGULAIR [Concomitant]
     Indication: ASTHMA
     Route: 065
  4. CETRIZINE [Concomitant]
     Indication: MULTIPLE ALLERGIES
     Route: 065
  5. NASONEX [Concomitant]
     Indication: MULTIPLE ALLERGIES
     Dosage: 2 SPRAYS DAILY
     Route: 065
  6. SIMVASTATIN [Concomitant]
     Indication: LIPIDS ABNORMAL
     Route: 065

REACTIONS (1)
  - Cerebrovascular accident [Not Recovered/Not Resolved]
